FAERS Safety Report 8315511-6 (Version None)
Quarter: 2012Q2

REPORT INFORMATION
  Report Type: 
  Country: None (occurrence: None)
  Receive Date: 20120426
  Receipt Date: 20120419
  Transmission Date: 20120825
  Serious: Yes (Congenital Anomaly, Other)
  Sender: FDA-Public Use
  Company Number: US-ABBOTT-12P-163-0905218-00

PATIENT
  Sex: Female
  Weight: 86.714 kg

DRUGS (8)
  1. HUMIRA [Suspect]
     Indication: RHEUMATOID ARTHRITIS
     Dates: start: 20100101, end: 20120101
  2. UNKNOWN MEDICATION [Concomitant]
     Indication: GASTROOESOPHAGEAL REFLUX DISEASE
  3. HUMIRA [Suspect]
     Route: 058
     Dates: start: 20120201
  4. METHOTREXATE [Concomitant]
     Indication: PRODUCT USED FOR UNKNOWN INDICATION
  5. LISINOPRIL [Concomitant]
     Indication: BLOOD PRESSURE
  6. CITALOPRAM HYDROBROMIDE [Concomitant]
     Indication: PRODUCT USED FOR UNKNOWN INDICATION
  7. UNKNOWN BLOOD PRESSURE MEDICATION [Concomitant]
     Indication: HYPERTENSION
  8. FOLIC ACID [Concomitant]
     Indication: PRODUCT USED FOR UNKNOWN INDICATION

REACTIONS (15)
  - NIGHT SWEATS [None]
  - PAIN [None]
  - RHEUMATOID ARTHRITIS [None]
  - SHOULDER ARTHROPLASTY [None]
  - HYPOAESTHESIA [None]
  - NEURALGIA [None]
  - CONSTIPATION [None]
  - PROCEDURAL PAIN [None]
  - PARAESTHESIA [None]
  - OSTEOARTHRITIS [None]
  - MUSCULOSKELETAL PAIN [None]
  - CARPAL TUNNEL SYNDROME [None]
  - PERONEAL MUSCULAR ATROPHY [None]
  - KNEE ARTHROPLASTY [None]
  - ARTHRALGIA [None]
